FAERS Safety Report 6128430-0 (Version None)
Quarter: 2009Q1

REPORT INFORMATION
  Report Type: 
  Country: None (occurrence: None)
  Receive Date: 20090323
  Receipt Date: 20090311
  Transmission Date: 20090719
  Serious: Yes (Other)
  Sender: FDA-Public Use
  Company Number: FR-ROCHE-601454

PATIENT
  Sex: Female
  Weight: 69 kg

DRUGS (3)
  1. CAPECITABINE [Suspect]
     Dosage: FROM C1 TO C3:3000MG/DAILY C4: 2300 MG/DAY CUMULATIVE DOSE (126000MG+32200 MG: 158 200MG)
     Route: 048
     Dates: start: 20080905
  2. CAPECITABINE [Suspect]
     Dosage: DOSE: 2300 MG  CUMULATIVE DOSE: 126000 MG (C1+C3)=151300 MG
     Route: 048
     Dates: start: 20081117
  3. DOCETAXEL [Suspect]
     Dosage: 75MG/M^2 ON DAY 1 WITHDRAWN FROM STUDY
     Route: 042
     Dates: start: 20080905

REACTIONS (1)
  - GENERAL PHYSICAL HEALTH DETERIORATION [None]
